FAERS Safety Report 25366760 (Version 1)
Quarter: 2025Q2

REPORT INFORMATION
  Report Type: Spontaneous
  Country: GB (occurrence: GB)
  Receive Date: 20250528
  Receipt Date: 20250528
  Transmission Date: 20250717
  Serious: Yes (Other)
  Sender: AMGEN
  Company Number: None

PATIENT
  Age: 33 Year
  Sex: Female
  Weight: 54 kg

DRUGS (4)
  1. IVABRADINE [Suspect]
     Active Substance: IVABRADINE
     Indication: Postural orthostatic tachycardia syndrome
     Dosage: 2.5 MG, QD
     Route: 065
  2. IVABRADINE [Suspect]
     Active Substance: IVABRADINE
     Dosage: 2.5 MG BID
     Route: 065
     Dates: start: 20250301
  3. IVABRADINE [Suspect]
     Active Substance: IVABRADINE
     Dosage: 2.5 MG, QD
     Route: 065
     Dates: start: 20250508, end: 20250514
  4. DIENOGEST [Concomitant]
     Active Substance: DIENOGEST
     Indication: Product used for unknown indication
     Route: 065

REACTIONS (1)
  - Intermenstrual bleeding [Recovering/Resolving]

NARRATIVE: CASE EVENT DATE: 20250301
